FAERS Safety Report 10161595 (Version 1)
Quarter: 2014Q2

REPORT INFORMATION
  Report Type: Spontaneous
  Country: US (occurrence: US)
  Receive Date: 20140509
  Receipt Date: 20140509
  Transmission Date: 20141212
  Serious: No
  Sender: FDA-Public Use
  Company Number: US-009507513-1404USA013994

PATIENT
  Sex: Female

DRUGS (1)
  1. IMPLANON [Suspect]
     Dosage: 68 MG
     Route: 059
     Dates: start: 2012

REACTIONS (6)
  - Pain in extremity [Unknown]
  - Metrorrhagia [Unknown]
  - Metrorrhagia [Unknown]
  - Device dislocation [Recovered/Resolved]
  - Device breakage [Unknown]
  - Device kink [Unknown]
